FAERS Safety Report 20391763 (Version 2)
Quarter: 2022Q1

REPORT INFORMATION
  Report Type: Report from Study
  Country: IT (occurrence: IT)
  Receive Date: 20220128
  Receipt Date: 20220303
  Transmission Date: 20220424
  Serious: Yes (Hospitalization, Other)
  Sender: FDA-Public Use
  Company Number: IT-NOVARTISPH-NVSC2022IT018186

PATIENT
  Sex: Female

DRUGS (2)
  1. COSENTYX [Suspect]
     Active Substance: SECUKINUMAB
     Indication: Product used for unknown indication
     Dosage: 300 MG, EVERY 7 DAYS
     Route: 065
     Dates: start: 20211013
  2. COSENTYX [Suspect]
     Active Substance: SECUKINUMAB
     Dosage: 300 MG, (EVERY 28 DAYS)
     Route: 065
     Dates: start: 20211013

REACTIONS (2)
  - Feeling abnormal [Unknown]
  - Cerebrovascular accident [Unknown]
